FAERS Safety Report 6492526-4 (Version None)
Quarter: 2009Q4

REPORT INFORMATION
  Report Type: 
  Country: None (occurrence: None)
  Receive Date: 20091208
  Receipt Date: 20091126
  Transmission Date: 20100525
  Serious: Yes (Other)
  Sender: FDA-Public Use
  Company Number: JPI-P-009316

PATIENT
  Age: 46 Year
  Sex: Female

DRUGS (3)
  1. FLUVOXAMINE MALEATE [Suspect]
     Indication: DEPRESSION
     Dosage: (150 MG, 1 D), ORAL
     Route: 048
  2. DROSPIRENONE AND ETHINYL ESTRADIOL [Suspect]
     Indication: CONTRACEPTION
     Dosage: (1 DOSAGE FORMS, 1 D), ORAL
     Route: 048
  3. ATENOLOL [Concomitant]

REACTIONS (1)
  - PULMONARY EMBOLISM [None]
